FAERS Safety Report 4354547-7 (Version None)
Quarter: 2004Q2

REPORT INFORMATION
  Report Type: 
  Country: None (occurrence: None)
  Receive Date: 20040503
  Receipt Date: 20040419
  Transmission Date: 20050107
  Serious: Yes (Other)
  Sender: FDA-Public Use
  Company Number: 2004007199

PATIENT
  Sex: Female

DRUGS (4)
  1. VFEND [Suspect]
     Indication: INFECTION
     Dosage: 400 MG (BID), ORAL
     Route: 048
     Dates: start: 20040117, end: 20040119
  2. GLIPIZIDE [Suspect]
     Indication: DIABETES MELLITUS
     Dosage: 5 MG (QD), ORAL
     Route: 048
     Dates: start: 20040105, end: 20040119
  3. GLUCOSE INJECTION (GLUCOSE INJECTION) [Concomitant]
  4. GLUCOSE (GLUCOSE) [Concomitant]

REACTIONS (14)
  - ABDOMINAL DISTENSION [None]
  - ABNORMAL BEHAVIOUR [None]
  - DEPRESSED LEVEL OF CONSCIOUSNESS [None]
  - DYSARTHRIA [None]
  - FOAMING AT MOUTH [None]
  - HYPOGLYCAEMIA [None]
  - INFECTION [None]
  - LETHARGY [None]
  - MOUTH BREATHING [None]
  - PETECHIAE [None]
  - SNORING [None]
  - SOMNOLENCE [None]
  - SPEECH DISORDER [None]
  - URINARY RETENTION [None]
